FAERS Safety Report 7711615-7 (Version None)
Quarter: 2011Q3

REPORT INFORMATION
  Report Type: 
  Country: None (occurrence: None)
  Receive Date: 20110826
  Receipt Date: 20110526
  Transmission Date: 20111222
  Serious: No
  Sender: FDA-Public Use
  Company Number: US-BRISTOL-MYERS SQUIBB COMPANY-15781982

PATIENT
  Age: 74 Year
  Sex: Female

DRUGS (2)
  1. METFORMIN HCL [Suspect]
  2. ONGLYZA [Suspect]

REACTIONS (2)
  - HYPOGLYCAEMIA [None]
  - MEDICATION ERROR [None]
